FAERS Safety Report 5532905-2 (Version None)
Quarter: 2007Q4

REPORT INFORMATION
  Report Type: 
  Country: None (occurrence: None)
  Receive Date: 20071204
  Receipt Date: 20071122
  Transmission Date: 20080405
  Serious: Yes (Hospitalization)
  Sender: FDA-Public Use
  Company Number: JP-AVENTIS-200712121JP

PATIENT
  Age: 72 Year
  Sex: Male
  Weight: 41 kg

DRUGS (6)
  1. TAXOTERE [Suspect]
     Indication: OESOPHAGEAL CARCINOMA RECURRENT
     Route: 041
     Dates: start: 20060919, end: 20060919
  2. TAXOTERE [Suspect]
     Route: 041
     Dates: end: 20070110
  3. RANDA [Concomitant]
     Indication: OESOPHAGEAL CARCINOMA RECURRENT
     Route: 041
     Dates: start: 20060919, end: 20070110
  4. FLUOROURACIL [Concomitant]
     Indication: OESOPHAGEAL CARCINOMA RECURRENT
     Route: 041
     Dates: start: 20060919, end: 20070114
  5. DECADRON [Concomitant]
     Indication: PREMEDICATION
  6. SEROTONE [Concomitant]
     Indication: PREMEDICATION

REACTIONS (2)
  - ALTERED STATE OF CONSCIOUSNESS [None]
  - HYPONATRAEMIA [None]
